FAERS Safety Report 9753684 (Version 1)
Quarter: 2013Q4

REPORT INFORMATION
  Report Type: Spontaneous
  Country: US (occurrence: US)
  Receive Date: 20131213
  Receipt Date: 20131213
  Transmission Date: 20140711
  Serious: No
  Sender: FDA-Public Use
  Company Number: US-B.I. PHARMACEUTICALS,INC./RIDGEFIELD-2013-BI-39607BP

PATIENT
  Age: 56 Year
  Sex: Male
  Weight: 111 kg

DRUGS (10)
  1. SPIRIVA [Suspect]
     Indication: CHRONIC OBSTRUCTIVE PULMONARY DISEASE
     Dosage: 18 MCG
     Route: 048
     Dates: start: 2011
  2. SPIRIVA [Suspect]
     Dosage: 18 MCG
     Route: 048
     Dates: start: 20131127, end: 20131127
  3. ALBUTEROL SULFATE [Concomitant]
     Indication: CHRONIC OBSTRUCTIVE PULMONARY DISEASE
     Dosage: 8 MG
     Route: 055
  4. TYLENOL #3/CODEINE [Concomitant]
     Indication: MIGRAINE
     Dosage: PRN
     Route: 048
  5. SYMBICORT [Concomitant]
     Indication: CHRONIC OBSTRUCTIVE PULMONARY DISEASE
     Dosage: (INHALATION SPRAY)
     Route: 055
  6. ALBUTEROL SULFATE NEBULIZER [Concomitant]
     Indication: CHRONIC OBSTRUCTIVE PULMONARY DISEASE
     Dosage: STRENGTH: 2.5 MG/3ML; DAILY DOSE: 15 MG/18ML
     Route: 055
  7. IPRATROPIUM [Concomitant]
     Indication: SINUS DISORDER
     Dosage: (NASAL SPRAY), BID
     Route: 045
  8. OMEPRAZOLE [Concomitant]
     Indication: ULCER
     Dosage: 20 MG
     Route: 048
  9. FLEXERIL [Concomitant]
     Indication: MUSCLE SPASMS
     Dosage: 30 MG
     Route: 048
  10. VENTOLIN [Concomitant]
     Indication: CHRONIC OBSTRUCTIVE PULMONARY DISEASE
     Dosage: (INHALATION SPRAY)
     Route: 055

REACTIONS (2)
  - Weight increased [Not Recovered/Not Resolved]
  - Incorrect route of drug administration [Recovered/Resolved]
